FAERS Safety Report 6344810-2 (Version None)
Quarter: 2009Q3

REPORT INFORMATION
  Report Type: 
  Country: None (occurrence: None)
  Receive Date: 20090904
  Receipt Date: 20090817
  Transmission Date: 20100115
  Serious: Yes (Hospitalization, Other)
  Sender: FDA-Public Use
  Company Number: 2009AL001005

PATIENT
  Age: 80 Year
  Sex: Female

DRUGS (20)
  1. DIGOXIN [Suspect]
     Indication: ATRIAL FIBRILLATION
     Dosage: 0.125MG, DAILY, PEG; 2.5MG LQ, DAILY, G-TUBE
     Dates: start: 20070825
  2. ASPIRIN [Concomitant]
  3. WELLBUTRIN [Concomitant]
  4. SYNTHROID [Concomitant]
  5. JANUVIA [Concomitant]
  6. LEVAQUIN [Concomitant]
  7. PLAVIX [Concomitant]
  8. METOPROLOL TARTRATE [Concomitant]
  9. NORVASC [Concomitant]
  10. TYLENOL (CAPLET) [Concomitant]
  11. LOVASTATIN [Concomitant]
  12. MAGIC MOUTHWASH [Concomitant]
  13. HYDROCODONE [Concomitant]
  14. INSULIN [Concomitant]
  15. LASIX [Concomitant]
  16. REGLAN [Concomitant]
  17. LISINOPRIL [Concomitant]
  18. CALCIUM OYSTER SHELL [Concomitant]
  19. LACTULOSE [Concomitant]
  20. VITAMIN K [Concomitant]

REACTIONS (20)
  - ANXIETY [None]
  - ATRIAL FIBRILLATION [None]
  - BRADYCARDIA [None]
  - COAGULOPATHY [None]
  - DYSPHAGIA [None]
  - ECONOMIC PROBLEM [None]
  - EMOTIONAL DISTRESS [None]
  - HAEMORRHAGE [None]
  - HYPOPHAGIA [None]
  - INJURY [None]
  - INTERNATIONAL NORMALISED RATIO INCREASED [None]
  - LOCAL SWELLING [None]
  - MALNUTRITION [None]
  - MENTAL STATUS CHANGES [None]
  - MUCOSAL INFLAMMATION [None]
  - NECK PAIN [None]
  - ODYNOPHAGIA [None]
  - OROPHARYNGEAL PAIN [None]
  - THERAPEUTIC AGENT TOXICITY [None]
  - WEIGHT INCREASED [None]
